FAERS Safety Report 10239577 (Version 1)
Quarter: 2014Q2

REPORT INFORMATION
  Report Type: Spontaneous
  Country: PT (occurrence: None)
  Receive Date: 20140612
  Receipt Date: 20140612
  Transmission Date: 20141212
  Serious: Yes (Other)
  Sender: FDA-Public Use
  Company Number: 2014060014

PATIENT
  Age: 7 Year
  Sex: Male

DRUGS (15)
  1. FELBAMATE [Suspect]
     Indication: STATUS EPILEPTICUS
     Route: 048
  2. LEVETIRACETAM [Suspect]
     Indication: STATUS EPILEPTICUS
  3. PHENYTOIN [Suspect]
     Indication: STATUS EPILEPTICUS
  4. PHENOBARBITAL [Suspect]
     Indication: STATUS EPILEPTICUS
  5. VALPROIC ACID [Suspect]
     Indication: STATUS EPILEPTICUS
  6. VIGABATRIN [Suspect]
     Indication: STATUS EPILEPTICUS
  7. ZONISAMIDE [Suspect]
     Indication: STATUS EPILEPTICUS
  8. PROPOFOL (PROPOFOL) [Concomitant]
  9. MIDAZOLAM (MIDAZOLAM) [Concomitant]
  10. THIOPENTAL SODIUM (THIOPENTAL SODIUM) [Concomitant]
  11. METHYLPREDNISOLONE (METHYLPREDNISOLONE) [Concomitant]
  12. GLOBULIN, IMMUNE (GLOBULIN, IMMUNE) [Concomitant]
  13. RITUXIMAB (RITUXIMAB) [Concomitant]
  14. CARBAMAZEPINE [Suspect]
     Indication: STATUS EPILEPTICUS
  15. LAMOTRIGINE [Suspect]
     Indication: STATUS EPILEPTICUS

REACTIONS (2)
  - Drug ineffective [None]
  - Cardiac failure [None]
